FAERS Safety Report 5102730-5 (Version None)
Quarter: 2006Q3

REPORT INFORMATION
  Report Type: 
  Country: None (occurrence: None)
  Receive Date: 20060907
  Receipt Date: 20060825
  Transmission Date: 20061208
  Serious: Yes (Death, Hospitalization)
  Sender: FDA-Public Use
  Company Number: 2006078985

PATIENT
  Age: 66 Year
  Sex: Male
  Weight: 75 kg

DRUGS (5)
  1. SUTENT [Suspect]
     Indication: DRUG USE FOR UNKNOWN INDICATION
     Dosage: 50
     Dates: start: 20060101, end: 20060613
  2. ACUPAN [Concomitant]
  3. KETOPROFEN [Concomitant]
  4. DURAGESIC-100 [Concomitant]
  5. MORPHINE SULFATE [Concomitant]

REACTIONS (3)
  - DISEASE PROGRESSION [None]
  - HYPOVOLAEMIC SHOCK [None]
  - METASTASES TO BONE [None]
